FAERS Safety Report 4953870-2 (Version None)
Quarter: 2006Q1

REPORT INFORMATION
  Report Type: 
  Country: None (occurrence: None)
  Receive Date: 20060324
  Receipt Date: 20060324
  Transmission Date: 20060701
  Serious: No
  Sender: FDA-Public Use
  Company Number: None

PATIENT
  Age: 76 Year
  Sex: Male
  Weight: 70 kg

DRUGS (14)
  1. FLUVASTATIN 80MG XL [Suspect]
     Indication: HYPERLIPIDAEMIA
     Dosage: FLUVASTATIN 80MG XL HS
     Dates: start: 20040901
  2. TYLENOL W/ CODEINE NO. 3 [Concomitant]
  3. BACLOFEN [Concomitant]
  4. METFORMIN [Concomitant]
  5. DIAZEPAM [Concomitant]
  6. BENADRYL [Concomitant]
  7. NITRO-DUR [Concomitant]
  8. ASPIRIN [Concomitant]
  9. CITALOPRAM HYDROBROMIDE [Concomitant]
  10. PLAVIX [Concomitant]
  11. METOPROLOL [Concomitant]
  12. OMEPRAZOLE [Concomitant]
  13. M.V.I. [Concomitant]
  14. NITROFURANTOIN [Concomitant]

REACTIONS (2)
  - HEPATIC ENZYME INCREASED [None]
  - TRANSIENT ISCHAEMIC ATTACK [None]
